FAERS Safety Report 7322094-6 (Version None)
Quarter: 2011Q1

REPORT INFORMATION
  Report Type: 
  Country: None (occurrence: None)
  Receive Date: 20110216
  Receipt Date: 20110208
  Transmission Date: 20110831
  Serious: Yes (Hospitalization)
  Sender: FDA-Public Use
  Company Number: 809092

PATIENT
  Age: 74 Year
  Sex: Female
  Weight: 75.2 kg

DRUGS (1)
  1. VANCOMYCIN HCL [Suspect]
     Indication: INFECTION
     Dosage: 750 MG, 3X A WEEK, INITRAVENOUS
     Route: 042
     Dates: start: 20110117, end: 20110117

REACTIONS (4)
  - PRURITUS [None]
  - BLOOD PRESSURE INCREASED [None]
  - DYSPNOEA [None]
  - RASH [None]
